FAERS Safety Report 16065258 (Version 1)
Quarter: 2019Q1

REPORT INFORMATION
  Report Type: Report from Study
  Country: GR (occurrence: GR)
  Receive Date: 20190313
  Receipt Date: 20190313
  Transmission Date: 20190418
  Serious: Yes (Hospitalization)
  Sender: FDA-Public Use
  Company Number: GR-SA-2019SA065244

PATIENT
  Age: 88 Year
  Sex: Male

DRUGS (6)
  1. EUCREAS [Concomitant]
     Active Substance: METFORMIN HYDROCHLORIDE\VILDAGLIPTIN
     Indication: DIABETES MELLITUS
  2. LOPRESOR [METOPROLOL FUMARATE] [Concomitant]
  3. LIPITOR [Concomitant]
     Active Substance: ATORVASTATIN CALCIUM
  4. NEXIUM [Concomitant]
     Active Substance: ESOMEPRAZOLE MAGNESIUM
     Dosage: UNK UNK, UNK
  5. ATARAX [ALPRAZOLAM] [Concomitant]
     Active Substance: ALPRAZOLAM
  6. GLIMEPIRIDE. [Suspect]
     Active Substance: GLIMEPIRIDE
     Indication: DIABETES MELLITUS
     Dosage: 1 G, QD
     Route: 048

REACTIONS (2)
  - Blood creatinine increased [Unknown]
  - Haematocrit decreased [Unknown]
